FAERS Safety Report 11519206 (Version 2)
Quarter: 2015Q4

REPORT INFORMATION
  Report Type: Report from Study
  Country: US (occurrence: US)
  Receive Date: 20150917
  Receipt Date: 20151122
  Transmission Date: 20160304
  Serious: No
  Sender: FDA-Public Use
  Company Number: US-AMGEN-USASP2015094312

PATIENT
  Age: 49 Year
  Sex: Female

DRUGS (1)
  1. ENBREL [Suspect]
     Active Substance: ETANERCEPT
     Indication: RHEUMATOID ARTHRITIS
     Dosage: UNK, QWK
     Route: 065
     Dates: start: 201507, end: 2015

REACTIONS (11)
  - Acne [Unknown]
  - Faeces discoloured [Unknown]
  - Injection site urticaria [Unknown]
  - Drug hypersensitivity [Unknown]
  - Influenza like illness [Unknown]
  - Injection site erythema [Unknown]
  - Injection site reaction [Unknown]
  - Adverse reaction [Unknown]
  - Intentional product misuse [Unknown]
  - Diarrhoea [Unknown]
  - Abdominal discomfort [Unknown]

NARRATIVE: CASE EVENT DATE: 2015
